FAERS Safety Report 9284320 (Version 1)
Quarter: 2013Q2

REPORT INFORMATION
  Report Type: Spontaneous
  Country: GB (occurrence: GB)
  Receive Date: 20130510
  Receipt Date: 20130510
  Transmission Date: 20140414
  Serious: Yes (Life-Threatening)
  Sender: FDA-Public Use
  Company Number: GB-PFIZER INC-2013141942

PATIENT
  Age: 59 Year
  Sex: Female
  Weight: 73 kg

DRUGS (3)
  1. XALATAN [Suspect]
     Indication: GLAUCOMA
     Dosage: 1 DROP (LEFT EYE)
     Route: 050
     Dates: start: 201203, end: 20130212
  2. COSOPT [Concomitant]
     Indication: GLAUCOMA
     Dosage: 1 DROP. ONGOING.
     Route: 050
     Dates: start: 20130205
  3. IOPIDINE [Concomitant]
     Indication: GLAUCOMA
     Dosage: 1 DROP. ONGOING
     Route: 050
     Dates: start: 201203

REACTIONS (2)
  - Raynaud^s phenomenon [Recovered/Resolved]
  - Heart rate increased [Recovered/Resolved]
